FAERS Safety Report 7590446-5 (Version None)
Quarter: 2011Q3

REPORT INFORMATION
  Report Type: 
  Country: None (occurrence: None)
  Receive Date: 20110705
  Receipt Date: 20110623
  Transmission Date: 20111222
  Serious: Yes (Life-Threatening, Hospitalization, Disabling, Other)
  Sender: FDA-Public Use
  Company Number: US-BAYER-2011-047789

PATIENT
  Age: 87 Year
  Sex: Male

DRUGS (1)
  1. AVELOX [Suspect]
     Indication: PNEUMONIA
     Dosage: 400 MG, QD
     Route: 048
     Dates: end: 20110520

REACTIONS (4)
  - DYSPNOEA [None]
  - CONVULSION [None]
  - PYREXIA [None]
  - ANAPHYLACTIC REACTION [None]
